FAERS Safety Report 7670060-3 (Version None)
Quarter: 2011Q3

REPORT INFORMATION
  Report Type: 
  Country: None (occurrence: None)
  Receive Date: 20110808
  Receipt Date: 20110728
  Transmission Date: 20111222
  Serious: Yes (Hospitalization, Other)
  Sender: FDA-Public Use
  Company Number: US-BAYER-201041690NA

PATIENT
  Age: 23 Year
  Sex: Female
  Weight: 99 kg

DRUGS (6)
  1. HYDROCODONE BITARTRATE AND ACETAMINOPHEN [Concomitant]
     Indication: PAIN
     Route: 048
  2. PROMETHAZINE [Concomitant]
     Indication: NAUSEA
     Dosage: 25 MG, UNK
  3. YAZ [Suspect]
     Indication: PREMENSTRUAL SYNDROME
  4. IBUPROFEN [Concomitant]
     Indication: MUSCLE SPASMS
     Dosage: 800 MG, UNK
     Route: 048
  5. OXYCODONE HYDROCHLORIDE EXTENDED RELEASE [Concomitant]
     Indication: PAIN
     Dosage: 20 MG, UNK
     Route: 048
  6. YAZ [Suspect]
     Indication: ACNE
     Dosage: UNK
     Route: 048
     Dates: start: 20080326, end: 20100323

REACTIONS (5)
  - PULMONARY EMBOLISM [None]
  - JOINT SWELLING [None]
  - GALLBLADDER INJURY [None]
  - DEEP VEIN THROMBOSIS [None]
  - FEELING HOT [None]
